FAERS Safety Report 13895434 (Version 1)
Quarter: 2017Q3

REPORT INFORMATION
  Report Type: Spontaneous
  Country: US (occurrence: US)
  Receive Date: 20170818
  Receipt Date: 20170818
  Transmission Date: 20171127
  Serious: Yes (Life-Threatening, Hospitalization, Other)
  Sender: FDA-Public Use
  Company Number: None

PATIENT
  Age: 66 Year
  Sex: Female
  Weight: 67.6 kg

DRUGS (2)
  1. IFEX [Suspect]
     Active Substance: IFOSFAMIDE
     Indication: SARCOMA
     Route: 042
     Dates: start: 20170513, end: 20170515
  2. IFEX [Suspect]
     Active Substance: IFOSFAMIDE
     Indication: THYROID CANCER
     Route: 042
     Dates: start: 20170513, end: 20170515

REACTIONS (11)
  - Diarrhoea [None]
  - Confusional state [None]
  - Restlessness [None]
  - Infusion related reaction [None]
  - Speech disorder [None]
  - Abdominal distension [None]
  - Muscle twitching [None]
  - Lethargy [None]
  - Dizziness [None]
  - Agitation [None]
  - Toxicity to various agents [None]

NARRATIVE: CASE EVENT DATE: 20170515
